FAERS Safety Report 15869889 (Version 1)
Quarter: 2019Q1

REPORT INFORMATION
  Report Type: Spontaneous
  Country: CA (occurrence: CA)
  Receive Date: 20190125
  Receipt Date: 20190125
  Transmission Date: 20190417
  Serious: Yes (Other)
  Sender: FDA-Public Use
  Company Number: CA-ASCEND THERAPEUTICS-2061778

PATIENT
  Age: 67 Year
  Sex: Female

DRUGS (2)
  1. ESTROGEL [Suspect]
     Active Substance: ESTRADIOL
     Indication: MENOPAUSAL SYMPTOMS
     Dates: start: 2017
  2. PROMETRIUM [Suspect]
     Active Substance: PROGESTERONE
     Dates: start: 2017

REACTIONS (2)
  - Discomfort [Unknown]
  - Cataract [Unknown]
